FAERS Safety Report 9202514 (Version 2)
Quarter: 2013Q2

REPORT INFORMATION
  Report Type: Spontaneous
  Country: US (occurrence: US)
  Receive Date: 20130401
  Receipt Date: 20130515
  Transmission Date: 20140414
  Serious: No
  Sender: FDA-Public Use
  Company Number: US-VERTEX PHARMACEUTICALS INC.-2013-004239

PATIENT
  Age: 51 Year
  Sex: Female
  Weight: 72 kg

DRUGS (3)
  1. INCIVEK [Suspect]
     Indication: HEPATITIS C
     Dosage: 750 MG, TID
     Route: 048
     Dates: start: 201205, end: 201208
  2. RIBAVIRIN [Suspect]
     Indication: HEPATITIS C
     Dosage: 600 MG AM, 400 MG PM
     Dates: start: 201205
  3. PEGASYS [Suspect]
     Indication: HEPATITIS C
     Dosage: 180 ?G, WEEKLY
     Route: 058
     Dates: start: 201305

REACTIONS (7)
  - Depression [Recovered/Resolved]
  - Emotional disorder [Recovered/Resolved]
  - Anorectal disorder [Recovered/Resolved]
  - Anorectal discomfort [Recovered/Resolved]
  - Rash [Recovered/Resolved]
  - Anal pruritus [Recovered/Resolved]
  - Drug ineffective [Unknown]
